FAERS Safety Report 6933899-5 (Version None)
Quarter: 2010Q3

REPORT INFORMATION
  Report Type: 
  Country: None (occurrence: None)
  Receive Date: 20100820
  Receipt Date: 20100806
  Transmission Date: 20110219
  Serious: Yes (Hospitalization)
  Sender: FDA-Public Use
  Company Number: FR-ROCHE-717253

PATIENT
  Sex: Male

DRUGS (2)
  1. MYCOPHENOLATE MOFETIL [Suspect]
     Dosage: LAST DOSE PRIOR TO SAE: 17 FEBRUARY 2010.
     Route: 048
     Dates: start: 20091221
  2. PROGRAF [Suspect]
     Route: 065

REACTIONS (3)
  - ABDOMINAL HERNIA [None]
  - ANGIOPATHY [None]
  - RENAL FAILURE [None]
